FAERS Safety Report 19887304 (Version 1)
Quarter: 2021Q3

REPORT INFORMATION
  Report Type: Spontaneous
  Country: IT (occurrence: IT)
  Receive Date: 20210927
  Receipt Date: 20210927
  Transmission Date: 20211014
  Serious: Yes (Other)
  Sender: FDA-Public Use
  Company Number: IT-MYLANLABS-2021M1066192

PATIENT
  Age: 37 Year
  Sex: Female

DRUGS (19)
  1. GEMCITABINE. [Suspect]
     Active Substance: GEMCITABINE
     Dosage: 25% REDUCED DOSE
     Route: 065
     Dates: start: 202012
  2. CYCLOPHOSPHAMIDE. [Suspect]
     Active Substance: CYCLOPHOSPHAMIDE
     Indication: TRIPLE POSITIVE BREAST CANCER
     Dosage: FOR FOUR CYCLES
     Route: 065
     Dates: start: 201201, end: 201204
  3. TRASTUZUMAB EMTANSINE [Suspect]
     Active Substance: ADO-TRASTUZUMAB EMTANSINE
     Indication: TRIPLE POSITIVE BREAST CANCER
     Dosage: 3.6 MILLIGRAM/KILOGRAM, Q3W
     Route: 065
     Dates: start: 201608
  4. DOCETAXEL. [Suspect]
     Active Substance: DOCETAXEL
     Dosage: AT STANDARD DOSE
     Route: 065
     Dates: start: 201601
  5. TRASTUZUMAB. [Suspect]
     Active Substance: TRASTUZUMAB
     Dosage: 600 MILLIGRAM, Q3W
     Route: 058
     Dates: start: 201210, end: 201304
  6. TRASTUZUMAB. [Suspect]
     Active Substance: TRASTUZUMAB
     Dosage: UNK UNK, Q3W, AT STANDARD DOSE
     Route: 058
     Dates: start: 201601
  7. DOCETAXEL. [Suspect]
     Active Substance: DOCETAXEL
     Dosage: 25% REDUCED DOSE
     Route: 065
     Dates: start: 2012
  8. PERTUZUMAB. [Suspect]
     Active Substance: PERTUZUMAB
     Indication: TRIPLE POSITIVE BREAST CANCER
     Route: 065
     Dates: start: 201601
  9. NAVELBINE [Suspect]
     Active Substance: VINORELBINE TARTRATE
     Indication: TRIPLE POSITIVE BREAST CANCER
     Dosage: 25 MG/MQ DAY 1?8
     Route: 065
     Dates: start: 201608
  10. TRASTUZUMAB. [Suspect]
     Active Substance: TRASTUZUMAB
     Indication: TRIPLE POSITIVE BREAST CANCER
     Dosage: 8 MILLIGRAM/KILOGRAM,LOADING DOSE
     Route: 058
     Dates: start: 201201, end: 201204
  11. GEMCITABINE. [Suspect]
     Active Substance: GEMCITABINE
     Indication: TRIPLE POSITIVE BREAST CANCER
     Dosage: 1000 MILLIGRAM/SQ. METER, Q3W, ON DAY 1 AND 8
     Route: 065
     Dates: start: 202004
  12. DOCETAXEL. [Suspect]
     Active Substance: DOCETAXEL
     Indication: TRIPLE POSITIVE BREAST CANCER
     Dosage: 100 MILLIGRAM/SQ. METER, CYCLE, FOR FOUR CYCLES
     Route: 065
     Dates: start: 201201, end: 201204
  13. CAPECITABINE. [Suspect]
     Active Substance: CAPECITABINE
     Indication: TRIPLE POSITIVE BREAST CANCER
     Dosage: UNK UNK, BID, 1000 MG/MQ ON DAY 1?14
     Route: 065
     Dates: start: 201810
  14. DENOSUMAB [Suspect]
     Active Substance: DENOSUMAB
     Indication: TRIPLE POSITIVE BREAST CANCER
     Dosage: 4 WEEK
     Route: 065
     Dates: start: 201608
  15. TRASTUZUMAB. [Suspect]
     Active Substance: TRASTUZUMAB
     Dosage: 6 MILLIGRAM/KILOGRAM, Q3W
     Route: 058
     Dates: start: 201204
  16. PACLITAXEL. [Suspect]
     Active Substance: PACLITAXEL
     Indication: TRIPLE POSITIVE BREAST CANCER
     Dosage: 260 MILLIGRAM/SQ. METER, Q3W
     Route: 065
     Dates: start: 2019
  17. DOXORUBICIN [Suspect]
     Active Substance: DOXORUBICIN
     Indication: TRIPLE POSITIVE BREAST CANCER
     Dosage: 60 MILLIGRAM/SQ. METER, CYCLE,FOR FOUR CYCLES
     Route: 065
     Dates: start: 201201, end: 201204
  18. LAPATINIB [Suspect]
     Active Substance: LAPATINIB
     Indication: TRIPLE POSITIVE BREAST CANCER
     Dosage: 1250 MILLIGRAM, QD
     Route: 065
     Dates: start: 201810
  19. TAMOXIFENE                         /00388701/ [Concomitant]
     Active Substance: TAMOXIFEN
     Indication: TRIPLE POSITIVE BREAST CANCER
     Route: 065

REACTIONS (6)
  - Hypertransaminasaemia [Unknown]
  - Thrombocytopenia [Unknown]
  - Anaemia [Unknown]
  - Hepatotoxicity [Unknown]
  - Mucosal inflammation [Unknown]
  - Neutropenia [Unknown]

NARRATIVE: CASE EVENT DATE: 2012
